FAERS Safety Report 6488865-3 (Version None)
Quarter: 2009Q4

REPORT INFORMATION
  Report Type: 
  Country: None (occurrence: None)
  Receive Date: 20091210
  Receipt Date: 20091201
  Transmission Date: 20100525
  Serious: Yes (Other)
  Sender: FDA-Public Use
  Company Number: GB-PFIZER INC-2008035306

PATIENT
  Age: 51 Year
  Sex: Male
  Weight: 68.6 kg

DRUGS (10)
  1. CHAMPIX [Suspect]
     Indication: SMOKING CESSATION THERAPY
     Route: 048
     Dates: start: 20080228
  2. CETIRIZINE [Concomitant]
     Dates: start: 20060101
  3. CLOPIDOGREL [Concomitant]
     Indication: CORONARY ARTERY DISEASE
     Dates: start: 20030101
  4. CO-CODAMOL [Concomitant]
     Dates: start: 20060101
  5. GLYCERYL TRINITRATE [Concomitant]
     Indication: ANGINA PECTORIS
     Dates: start: 19980101
  6. LANSOPRAZOLE [Concomitant]
     Dates: start: 20040101
  7. LOSARTAN [Concomitant]
     Dates: start: 20060101
  8. NIFEDIPINE [Concomitant]
     Indication: ANGINA PECTORIS
     Dates: start: 20010101
  9. SILDENAFIL [Concomitant]
     Indication: HYPERTENSION
     Dates: start: 20040101
  10. SIMVASTATIN [Concomitant]
     Indication: HYPERCHOLESTEROLAEMIA
     Dates: start: 20060101

REACTIONS (1)
  - BLOOD GLUCOSE INCREASED [None]
